FAERS Safety Report 7644820-9 (Version None)
Quarter: 2011Q3

REPORT INFORMATION
  Report Type: 
  Country: None (occurrence: None)
  Receive Date: 20110729
  Receipt Date: 20110719
  Transmission Date: 20111222
  Serious: Yes (Other)
  Sender: FDA-Public Use
  Company Number: ES-JNJFOC-20100304091

PATIENT
  Sex: Female
  Weight: 62 kg

DRUGS (5)
  1. CYCLOSPORINE [Suspect]
     Indication: PSORIASIS
     Route: 048
     Dates: start: 20100311
  2. STELARA [Suspect]
     Indication: PUSTULAR PSORIASIS
     Route: 058
     Dates: start: 20090901, end: 20100130
  3. METHYLPREDNISOLONE [Suspect]
     Indication: PSORIASIS
     Dates: start: 20100311
  4. POLARAMINE [Suspect]
     Indication: PSORIASIS
     Route: 061
     Dates: start: 20100311
  5. CYCLOSPORINE [Suspect]
     Route: 048
     Dates: start: 20100801, end: 20101001

REACTIONS (6)
  - PSORIASIS [None]
  - MATERNAL EXPOSURE DURING PREGNANCY [None]
  - GESTATIONAL DIABETES [None]
  - HYPERTRIGLYCERIDAEMIA [None]
  - UMBILICAL CORD ABNORMALITY [None]
  - PREMATURE LABOUR [None]
